FAERS Safety Report 18531439 (Version 1)
Quarter: 2020Q4

REPORT INFORMATION
  Report Type: Spontaneous
  Country: PT (occurrence: PT)
  Receive Date: 20201122
  Receipt Date: 20201122
  Transmission Date: 20210114
  Serious: Yes (Disabling)
  Sender: FDA-Public Use
  Company Number: PT-ASTRAZENECA-2020SF49385

PATIENT
  Age: 21 Year
  Sex: Female

DRUGS (13)
  1. FILOTEMPO [Suspect]
     Active Substance: AMINOPHYLLINE
     Indication: RESPIRATORY TRACT INFECTION
     Route: 048
     Dates: start: 20191206, end: 20191214
  2. FILOTEMPO [Suspect]
     Active Substance: AMINOPHYLLINE
     Indication: RESPIRATORY TRACT INFECTION
     Route: 048
  3. OTO-SYNALAR N [Suspect]
     Active Substance: FLUOCINOLONE ACETONIDE\NEOMYCIN SULFATE\POLYMYXIN B SULFATE
     Indication: RESPIRATORY TRACT INFECTION
     Route: 001
  4. BEN-U-RON [Suspect]
     Active Substance: ACETAMINOPHEN
     Indication: RESPIRATORY TRACT INFECTION
     Route: 048
     Dates: start: 20191206, end: 20191214
  5. BEN-U-RON [Suspect]
     Active Substance: ACETAMINOPHEN
     Indication: RESPIRATORY TRACT INFECTION
     Route: 048
  6. UNSPECIFIED [Suspect]
     Active Substance: UNSPECIFIED INGREDIENT
     Indication: RESPIRATORY TRACT INFECTION
     Route: 048
     Dates: start: 20191206, end: 20191214
  7. SYMBICORT [Suspect]
     Active Substance: BUDESONIDE\FORMOTEROL FUMARATE DIHYDRATE
     Indication: RESPIRATORY TRACT INFECTION
     Dosage: UNKNOWN UNKNOWN
     Route: 055
  8. CODIPRONT [Suspect]
     Active Substance: CODEINE\PHENYLTOLOXAMINE
     Indication: RESPIRATORY TRACT INFECTION
     Route: 048
  9. OTO-SYNALAR N [Suspect]
     Active Substance: FLUOCINOLONE ACETONIDE\NEOMYCIN SULFATE\POLYMYXIN B SULFATE
     Indication: RESPIRATORY TRACT INFECTION
     Route: 001
     Dates: start: 20191206, end: 20191214
  10. CODIPRONT [Suspect]
     Active Substance: CODEINE\PHENYLTOLOXAMINE
     Indication: RESPIRATORY TRACT INFECTION
     Route: 048
     Dates: start: 20191206, end: 20191214
  11. UNSPECIFIED [Suspect]
     Active Substance: UNSPECIFIED INGREDIENT
     Indication: RESPIRATORY TRACT INFECTION
     Route: 048
  12. DUALGAN [Suspect]
     Active Substance: ETODOLAC
     Indication: RESPIRATORY TRACT INFECTION
     Route: 048
     Dates: start: 20191206
  13. SYMBICORT [Suspect]
     Active Substance: BUDESONIDE\FORMOTEROL FUMARATE DIHYDRATE
     Indication: RESPIRATORY TRACT INFECTION
     Dosage: UNKNOWN UNKNOWN
     Route: 055
     Dates: start: 20191206, end: 20191214

REACTIONS (2)
  - Somnolence [Recovered/Resolved]
  - Fatigue [Recovered/Resolved]

NARRATIVE: CASE EVENT DATE: 20191206
